FAERS Safety Report 8593161 (Version 3)
Quarter: 2014Q1

REPORT INFORMATION
  Report Type: Spontaneous
  Country: US (occurrence: US)
  Receive Date: 20120604
  Receipt Date: 20140130
  Transmission Date: 20141002
  Serious: Yes (Hospitalization)
  Sender: FDA-Public Use
  Company Number: US-ASTRAZENECA-2012SE35180

PATIENT
  Age: 18710 Day
  Sex: Female

DRUGS (15)
  1. NEXIUM [Suspect]
     Indication: GASTROOESOPHAGEAL REFLUX DISEASE
     Route: 048
     Dates: start: 20050509
  2. NEXIUM [Suspect]
     Indication: GASTROOESOPHAGEAL REFLUX DISEASE
     Route: 048
     Dates: start: 20050629, end: 20050803
  3. NEXIUM [Suspect]
     Indication: GASTROOESOPHAGEAL REFLUX DISEASE
     Route: 048
     Dates: start: 20050509, end: 20061229
  4. NEXIUM [Suspect]
     Indication: GASTROOESOPHAGEAL REFLUX DISEASE
     Route: 048
     Dates: start: 20050509, end: 20061229
  5. PROTONIX/PANTOPRAZOLE SOD [Concomitant]
  6. PREVACID [Concomitant]
  7. ACIPHEX [Concomitant]
     Dates: start: 20040216
  8. DEXILANT [Concomitant]
  9. ZANTAC [Concomitant]
  10. PEPCID [Concomitant]
  11. MEDROXYPR AC [Concomitant]
  12. WELLBUTRIN [Concomitant]
  13. PREMARIN [Concomitant]
  14. LOTREL [Concomitant]
  15. METHYLPREDNISOLONE [Concomitant]

REACTIONS (14)
  - Osteoporosis [Unknown]
  - Spinal pain [Unknown]
  - Osteopenia [Unknown]
  - Local swelling [Unknown]
  - Bone density decreased [Unknown]
  - Multiple fractures [Unknown]
  - Neck pain [Unknown]
  - Spondylitis [Unknown]
  - Calcium deficiency [Unknown]
  - Arthritis [Unknown]
  - Bone disorder [Unknown]
  - Vitamin D deficiency [Unknown]
  - Toothache [Unknown]
  - Arthralgia [Unknown]
